FAERS Safety Report 18969016 (Version 3)
Quarter: 2021Q1

REPORT INFORMATION
  Report Type: Report from Study
  Country: CH (occurrence: CH)
  Receive Date: 20210304
  Receipt Date: 20210317
  Transmission Date: 20210420
  Serious: Yes (Hospitalization)
  Sender: FDA-Public Use
  Company Number: CH-ROCHE-2778881

PATIENT
  Age: 77 Year
  Sex: Male
  Weight: 76.4 kg

DRUGS (13)
  1. SOLU?MEDROL [Concomitant]
     Active Substance: METHYLPREDNISOLONE SODIUM SUCCINATE
     Route: 042
     Dates: start: 20210126, end: 20210127
  2. COBIMETINIB. [Suspect]
     Active Substance: COBIMETINIB
     Indication: METASTASES TO CENTRAL NERVOUS SYSTEM
     Dosage: ON 18/JAN/2021, SHE RECEIVED MOST RECENT DOSE OF COBIMETINIB 60 MG.
     Route: 048
     Dates: start: 20201207
  3. PREDNISON [Concomitant]
     Active Substance: PREDNISONE
     Route: 048
     Dates: start: 20210129, end: 20210130
  4. SOLU?MEDROL [Concomitant]
     Active Substance: METHYLPREDNISOLONE SODIUM SUCCINATE
     Route: 042
     Dates: start: 20210120, end: 20210120
  5. PREDNISONE. [Concomitant]
     Active Substance: PREDNISONE
     Indication: ASPARTATE AMINOTRANSFERASE INCREASED
     Route: 048
     Dates: start: 20210205, end: 20210208
  6. PREDNISON [Concomitant]
     Active Substance: PREDNISONE
     Indication: ASPARTATE AMINOTRANSFERASE INCREASED
     Route: 048
     Dates: start: 20210121, end: 20210126
  7. PREDNISONE. [Concomitant]
     Active Substance: PREDNISONE
     Route: 048
     Dates: start: 20210217
  8. PANTOZOL [Concomitant]
     Active Substance: PANTOPRAZOLE SODIUM
     Route: 048
     Dates: start: 20201228
  9. REMICADE [Concomitant]
     Active Substance: INFLIXIMAB
     Route: 042
     Dates: start: 20210126, end: 20210126
  10. PREDNISONE. [Concomitant]
     Active Substance: PREDNISONE
     Indication: CYTOKINE RELEASE SYNDROME
     Route: 048
     Dates: start: 20210209, end: 20210216
  11. ATEZOLIZUMAB. [Suspect]
     Active Substance: ATEZOLIZUMAB
     Indication: METASTASES TO CENTRAL NERVOUS SYSTEM
     Dosage: ON 05/JAN/2021 AT 12:15, SHE RECEIVED MOST RECENT DOSE OF ATEZOLIZUMAB 840 MG.?ON DAYS 1 AND 15 OF E
     Route: 041
     Dates: start: 20210105
  12. VEMURAFENIB. [Suspect]
     Active Substance: VEMURAFENIB
     Indication: METASTASES TO CENTRAL NERVOUS SYSTEM
     Dosage: ON 18/JAN/2021, SHE RECEIVED MOST RECENT DOSE OF VEMURAFENIB 720 MG.
     Route: 048
     Dates: start: 20201207
  13. PREDNISON [Concomitant]
     Active Substance: PREDNISONE
     Route: 048
     Dates: start: 20210131, end: 20210204

REACTIONS (1)
  - Cytokine release syndrome [Recovered/Resolved]

NARRATIVE: CASE EVENT DATE: 20210217
